FAERS Safety Report 23205844 (Version 1)
Quarter: 2023Q4

REPORT INFORMATION
  Report Type: Report from Study
  Country: US (occurrence: US)
  Receive Date: 20231120
  Receipt Date: 20231120
  Transmission Date: 20240110
  Serious: Yes (Other)
  Sender: FDA-Public Use
  Company Number: US-ALNYLAM PHARMACEUTICALS, INC.-ALN-2023-004027

PATIENT

DRUGS (2)
  1. AMVUTTRA [Suspect]
     Active Substance: VUTRISIRAN
     Indication: Hereditary neuropathic amyloidosis
     Dosage: UNK
     Route: 065
     Dates: start: 20230221
  2. VYNDAMAX [Concomitant]
     Active Substance: TAFAMIDIS
     Indication: Product used for unknown indication
     Dosage: UNK
     Route: 065

REACTIONS (10)
  - Disease progression [Unknown]
  - Malaise [Unknown]
  - Therapeutic response shortened [Unknown]
  - Fatigue [Unknown]
  - Balance disorder [Unknown]
  - Memory impairment [Unknown]
  - Injection site bruising [Unknown]
  - Chest discomfort [Unknown]
  - Spinal stenosis [Unknown]
  - Neck surgery [Unknown]
